FAERS Safety Report 4368863-6 (Version None)
Quarter: 2004Q2

REPORT INFORMATION
  Report Type: 
  Country: None (occurrence: None)
  Receive Date: 20040525
  Receipt Date: 20040511
  Transmission Date: 20050107
  Serious: Yes (Life-Threatening)
  Sender: FDA-Public Use
  Company Number: 04P-163-0251498-00

PATIENT
  Age: 43 Year
  Sex: Female
  Weight: 88.2 kg

DRUGS (17)
  1. HUMIRA [Suspect]
     Indication: RHEUMATOID ARTHRITIS
     Dosage: 40 MG, 1 IN 2 WK, SUBCUTANEOUS
     Route: 058
     Dates: start: 20010326, end: 20040223
  2. HUMIRA [Suspect]
     Indication: RHEUMATOID ARTHRITIS
     Dosage: 40 MG, 1 IN 2 WK, SUBCUTANEOUS
     Route: 058
     Dates: start: 20040426
  3. METHOTREXATE [Concomitant]
  4. ACETAMINOPHEN [Concomitant]
  5. ZITHROMAX [Concomitant]
  6. DESONIDE [Concomitant]
  7. PSEUDOEPHEDRINE HYDROCHLORIDE [Concomitant]
  8. BISMUTH SUBCALICYLATE [Concomitant]
  9. LOPERAMIDE HYDROCHLORIDE [Concomitant]
  10. OMEPRAZOLE [Concomitant]
  11. METHYLPREDNISOLONE [Concomitant]
  12. LIDOCAINE [Concomitant]
  13. DEXAMETHASONE SODIUM PHOSPHATE [Concomitant]
  14. PREDNISONE [Concomitant]
  15. PROPRANOLOL HYDROCHLORIDE [Concomitant]
  16. LIOTHYRONINE SODIUM [Concomitant]
  17. DESOGESTREL AND ETHINYL ESTRADIOL [Concomitant]

REACTIONS (12)
  - DYSPNOEA [None]
  - FATIGUE [None]
  - HYPERHIDROSIS [None]
  - INSOMNIA [None]
  - OROPHARYNGEAL SWELLING [None]
  - PALPITATIONS [None]
  - PAPILLARY THYROID CANCER [None]
  - PROCEDURAL SITE REACTION [None]
  - RHEUMATOID ARTHRITIS [None]
  - SCAR [None]
  - SKIN IRRITATION [None]
  - TREMOR [None]
